FAERS Safety Report 21961326 (Version 3)
Quarter: 2023Q2

REPORT INFORMATION
  Report Type: Report from Study
  Country: US (occurrence: US)
  Receive Date: 20230207
  Receipt Date: 20230605
  Transmission Date: 20230722
  Serious: Yes (Other)
  Sender: FDA-Public Use
  Company Number: US-002147023-NVSC2023US027265

PATIENT
  Sex: Female

DRUGS (1)
  1. EXJADE [Suspect]
     Active Substance: DEFERASIROX
     Indication: Iron overload
     Dosage: 500 MG, QD
     Route: 048

REACTIONS (6)
  - Pneumonia legionella [Unknown]
  - Renal failure [Unknown]
  - Blindness [Unknown]
  - Vulvovaginal burning sensation [Unknown]
  - Escherichia urinary tract infection [Unknown]
  - Eye inflammation [Unknown]
